FAERS Safety Report 6651776-4 (Version None)
Quarter: 2010Q1

REPORT INFORMATION
  Report Type: 
  Country: None (occurrence: None)
  Receive Date: 20100322
  Receipt Date: 20100308
  Transmission Date: 20100710
  Serious: Yes (Other)
  Sender: FDA-Public Use
  Company Number: ALD1-GR-2010-0013

PATIENT
  Sex: Male

DRUGS (7)
  1. ALDOMET [Suspect]
     Dosage: 250 MG (3 IN 1 D) PER ORAL
     Route: 048
  2. THERAPY UNSPECIFIED [Concomitant]
  3. ESTRADIOL [Concomitant]
  4. ESTROGENS (UNSPECIFIED) [Concomitant]
  5. LEVOTHYROXINE NA (LEVOTHYROXINE SODIUM) (LEVOTHYROXINE SODIUM) [Concomitant]
  6. MEDROXYPROGESTERONE ACETATE (MEDROXYPROGESTERONE ACETATE) (MEDROXYPROG [Concomitant]
  7. PROGESTERONE (PROGESTERONE) (PROGESTERONE) [Concomitant]

REACTIONS (6)
  - BLOOD PH DECREASED [None]
  - CAESAREAN SECTION [None]
  - FOETAL GROWTH RETARDATION [None]
  - MATERNAL DRUGS AFFECTING FOETUS [None]
  - SMALL FOR DATES BABY [None]
  - UNDERWEIGHT [None]
